FAERS Safety Report 6478230-7 (Version None)
Quarter: 2009Q4

REPORT INFORMATION
  Report Type: 
  Country: None (occurrence: None)
  Receive Date: 20091207
  Receipt Date: 20091204
  Transmission Date: 20100525
  Serious: Yes (Other)
  Sender: FDA-Public Use
  Company Number: BR-PFIZER INC-2009282828

PATIENT
  Sex: Male

DRUGS (1)
  1. CARDURAN XL [Suspect]
     Dosage: UNK
     Route: 048
     Dates: start: 20090901

REACTIONS (5)
  - ERYSIPELAS [None]
  - PENIS DISORDER [None]
  - PENIS INJURY [None]
  - PRURITUS [None]
  - WOUND [None]
